FAERS Safety Report 6092587-0 (Version None)
Quarter: 2009Q1

REPORT INFORMATION
  Report Type: 
  Country: None (occurrence: None)
  Receive Date: 20090225
  Receipt Date: 20080401
  Transmission Date: 20090719
  Serious: Yes (Other)
  Sender: FDA-Public Use
  Company Number: US-BRISTOL-MYERS SQUIBB COMPANY-14133052

PATIENT
  Sex: Male

DRUGS (1)
  1. KENALOG [Suspect]
     Dosage: THIS IS THIRD INJECTION, BUT FIRST IN TEN MONTHS
     Dates: start: 20080327

REACTIONS (1)
  - VISION BLURRED [None]
